FAERS Safety Report 7672161-2 (Version None)
Quarter: 2011Q3

REPORT INFORMATION
  Report Type: 
  Country: None (occurrence: None)
  Receive Date: 20110809
  Receipt Date: 20110727
  Transmission Date: 20111222
  Serious: No
  Sender: FDA-Public Use
  Company Number: PHHY2011US68722

PATIENT

DRUGS (6)
  1. POTASSIUM [Concomitant]
  2. BYSTOLIC [Concomitant]
  3. AZITHROMYCIN [Interacting]
     Dosage: UNK
     Dates: end: 20110727
  4. TASIGNA [Suspect]
     Indication: CHRONIC MYELOID LEUKAEMIA
     Dosage: 150 MG, BID
     Route: 048
     Dates: start: 20100622
  5. HYDROCHLOROTHIAZID [Concomitant]
  6. ASPIRIN [Concomitant]

REACTIONS (2)
  - MUSCLE SPASMS [None]
  - DRUG INTERACTION [None]
